FAERS Safety Report 25529629 (Version 2)
Quarter: 2025Q3

REPORT INFORMATION
  Report Type: Report from Study
  Country: US (occurrence: US)
  Receive Date: 20250708
  Receipt Date: 20250809
  Transmission Date: 20251021
  Serious: Yes (Other)
  Sender: ALEXION PHARMACEUTICALS
  Company Number: US-AstraZeneca-CH-00874026A

PATIENT
  Sex: Female

DRUGS (4)
  1. FASENRA [Suspect]
     Active Substance: BENRALIZUMAB
     Route: 065
  2. FASENRA [Suspect]
     Active Substance: BENRALIZUMAB
  3. BUDESONIDE\FORMOTEROL [Suspect]
     Active Substance: BUDESONIDE\FORMOTEROL
     Route: 065
  4. DUPIXENT [Suspect]
     Active Substance: DUPILUMAB
     Route: 065

REACTIONS (15)
  - Eosinophil count abnormal [Unknown]
  - Product ineffective [Unknown]
  - Dyspnoea [Unknown]
  - Steroid dependence [Unknown]
  - Asthma [Unknown]
  - COVID-19 [Unknown]
  - Headache [Unknown]
  - Bronchopulmonary aspergillosis allergic [Unknown]
  - Arthralgia [Unknown]
  - Serum sickness [Unknown]
  - Pain [Unknown]
  - Nasopharyngitis [Unknown]
  - Osteoporosis [Unknown]
  - Treatment failure [Unknown]
  - Cough [Unknown]
